FAERS Safety Report 11049306 (Version 3)
Quarter: 2017Q1

REPORT INFORMATION
  Report Type: Spontaneous
  Country: US (occurrence: US)
  Receive Date: 20150420
  Receipt Date: 20170324
  Transmission Date: 20170428
  Serious: Yes (Hospitalization)
  Sender: FDA-Public Use
  Company Number: US-MYLANLABS-2015M1012816

PATIENT

DRUGS (8)
  1. DONEPEZIL. [Suspect]
     Active Substance: DONEPEZIL
     Dosage: TITRATED UPTO 15MG AT BEDTIME IN 1.5 YEARS
     Route: 065
  2. MEMANTINE. [Concomitant]
     Active Substance: MEMANTINE
     Indication: COGNITIVE DISORDER
     Dosage: 28 MG/DAY
     Route: 065
  3. FUROSEMIDE. [Concomitant]
     Active Substance: FUROSEMIDE
     Indication: OEDEMA
     Dosage: AS NEEDED
  4. AMITRIPTYLINE [Concomitant]
     Active Substance: AMITRIPTYLINE
     Dosage: 25 MG ONCE/NIGHT
     Route: 065
  5. ROPINIROLE. [Concomitant]
     Active Substance: ROPINIROLE
     Dosage: 1 MG EVERY NIGHT
     Route: 065
  6. DONEPEZIL. [Suspect]
     Active Substance: DONEPEZIL
     Dosage: 10MG/DAY
     Route: 065
  7. DONEPEZIL. [Suspect]
     Active Substance: DONEPEZIL
     Dosage: 5MG AT BEDTIME
     Route: 065
     Dates: start: 2011
  8. FLUTICASONE PROPIONATE. [Concomitant]
     Active Substance: FLUTICASONE PROPIONATE
     Dosage: 50-LG SPRAY IN BOTH NOSTRILS ONCE/DAY
     Route: 045

REACTIONS (2)
  - Hiccups [Unknown]
  - Off label use [Unknown]
